FAERS Safety Report 9252839 (Version 1)
Quarter: 2013Q2

REPORT INFORMATION
  Report Type: Spontaneous
  Country: US (occurrence: US)
  Receive Date: 20130424
  Receipt Date: 20130424
  Transmission Date: 20140414
  Serious: Yes (Other)
  Sender: FDA-Public Use
  Company Number: US-PFIZER INC-2013123678

PATIENT
  Sex: Female
  Weight: 68.93 kg

DRUGS (9)
  1. XALATAN [Suspect]
     Indication: GLAUCOMA
     Dosage: 1 GTT, 1X/DAY
     Route: 047
     Dates: start: 1993
  2. CALCIUM CITRATE [Concomitant]
     Dosage: UNK
  3. BORIC ACID [Concomitant]
     Dosage: UNK
  4. LISINOPRIL [Concomitant]
     Dosage: 20 MG, 1X/DAY
  5. METHOTREXATE [Concomitant]
     Dosage: 15 MG, WEEKLY ON EVERY FRIDAY
  6. METOPROLOL [Concomitant]
     Dosage: 50 MG, 1X/DAY
  7. FLUOROMETHOLONE [Concomitant]
     Indication: EYE ALLERGY
     Dosage: UNK, AS NEEDED
  8. VITAMIN D [Concomitant]
     Dosage: UNK
  9. DYTOR [Concomitant]
     Dosage: UNK

REACTIONS (1)
  - Hypoacusis [Not Recovered/Not Resolved]
